FAERS Safety Report 24921608 (Version 1)
Quarter: 2025Q1

REPORT INFORMATION
  Report Type: Spontaneous
  Country: DE (occurrence: DE)
  Receive Date: 20250204
  Receipt Date: 20250204
  Transmission Date: 20250409
  Serious: Yes (Other)
  Sender: BOEHRINGER INGELHEIM
  Company Number: DE-BoehringerIngelheim-2024-BI-066628

PATIENT
  Age: 70 Year
  Sex: Male
  Weight: 73 kg

DRUGS (5)
  1. JARDIANCE [Suspect]
     Active Substance: EMPAGLIFLOZIN
     Indication: Type 2 diabetes mellitus
     Dates: end: 20241120
  2. CARVEDILOL [Concomitant]
     Active Substance: CARVEDILOL
     Indication: Portal hypertensive gastropathy
  3. HEPA MERZ 3000 [Concomitant]
     Indication: Hepatic cirrhosis
  4. Spiro 100 [Concomitant]
     Indication: Product used for unknown indication
  5. TORSEMIDE [Concomitant]
     Active Substance: TORSEMIDE
     Indication: Product used for unknown indication

REACTIONS (2)
  - Phimosis [Unknown]
  - Urinary retention [Unknown]
